FAERS Safety Report 18507384 (Version 3)
Quarter: 2023Q4

REPORT INFORMATION
  Report Type: Report from Study
  Country: AT (occurrence: AT)
  Receive Date: 20201116
  Receipt Date: 20231211
  Transmission Date: 20240109
  Serious: Yes (Other)
  Sender: FDA-Public Use
  Company Number: AT-AMGEN-AUTNI2020185244

PATIENT
  Age: 60 Year
  Sex: Male
  Weight: 75 kg

DRUGS (30)
  1. PANITUMUMAB [Suspect]
     Active Substance: PANITUMUMAB
     Indication: Colorectal cancer metastatic
     Dosage: 450 MILLIGRAM
     Route: 042
     Dates: start: 20201104
  2. PANITUMUMAB [Suspect]
     Active Substance: PANITUMUMAB
     Dosage: 450 MILLIGRAM
     Route: 042
     Dates: start: 20200616
  3. PANITUMUMAB [Suspect]
     Active Substance: PANITUMUMAB
     Dosage: 444 MILLIGRAM
     Route: 042
     Dates: start: 20200715
  4. PANITUMUMAB [Suspect]
     Active Substance: PANITUMUMAB
     Dosage: 462 MILLIGRAM
     Route: 042
     Dates: start: 20200909
  5. PANITUMUMAB [Suspect]
     Active Substance: PANITUMUMAB
     Dosage: 456 MILLIGRAM
     Route: 042
     Dates: start: 20201201
  6. LEUCOVORIN [Suspect]
     Active Substance: LEUCOVORIN\LEUCOVORIN CALCIUM
     Indication: Colorectal cancer metastatic
     Dosage: 385 MILLIGRAM
     Route: 065
     Dates: start: 20200616
  7. LEUCOVORIN [Suspect]
     Active Substance: LEUCOVORIN\LEUCOVORIN CALCIUM
     Dosage: 383 MILLIGRAM
     Route: 065
     Dates: start: 20200715
  8. LEUCOVORIN [Suspect]
     Active Substance: LEUCOVORIN\LEUCOVORIN CALCIUM
     Dosage: 385 MILLIGRAM
     Route: 065
     Dates: start: 20200701
  9. LEUCOVORIN [Suspect]
     Active Substance: LEUCOVORIN\LEUCOVORIN CALCIUM
     Dosage: 388 MILLIGRAM
     Route: 065
     Dates: start: 20201201
  10. LEUCOVORIN [Suspect]
     Active Substance: LEUCOVORIN\LEUCOVORIN CALCIUM
     Dosage: 390 MILLIGRAM
     Route: 065
     Dates: start: 20200909
  11. FLUOROURACIL [Suspect]
     Active Substance: FLUOROURACIL
     Indication: Colorectal cancer metastatic
     Dosage: 771 MILLIGRAM
     Route: 040
     Dates: start: 20200616
  12. FLUOROURACIL [Suspect]
     Active Substance: FLUOROURACIL
     Dosage: 766 MILLIGRAM
     Route: 040
     Dates: start: 20200715
  13. FLUOROURACIL [Suspect]
     Active Substance: FLUOROURACIL
     Dosage: 1150 MILLIGRAM
     Route: 042
     Dates: start: 20200715
  14. FLUOROURACIL [Suspect]
     Active Substance: FLUOROURACIL
     Dosage: 1156 MILLIGRAM
     Route: 042
     Dates: start: 20200616
  15. FLUOROURACIL [Suspect]
     Active Substance: FLUOROURACIL
     Dosage: 1163 MILLIGRAM
     Route: 042
     Dates: start: 20201201
  16. FLUOROURACIL [Suspect]
     Active Substance: FLUOROURACIL
     Dosage: 1169 MILLIGRAM
     Route: 042
     Dates: start: 20200909
  17. OXALIPLATIN [Suspect]
     Active Substance: OXALIPLATIN
     Indication: Colorectal cancer metastatic
     Dosage: 164 MILLIGRAM
     Route: 065
     Dates: start: 20200616
  18. OXALIPLATIN [Suspect]
     Active Substance: OXALIPLATIN
     Dosage: 122 MILLIGRAM
     Route: 065
     Dates: start: 20211122
  19. OXALIPLATIN [Suspect]
     Active Substance: OXALIPLATIN
     Dosage: 123 MILLIGRAM
     Route: 065
     Dates: start: 20201104
  20. OXALIPLATIN [Suspect]
     Active Substance: OXALIPLATIN
     Dosage: 124 MILLIGRAM
     Route: 065
     Dates: start: 20200909
  21. OXALIPLATIN [Suspect]
     Active Substance: OXALIPLATIN
     Dosage: 163 MILLIGRAM
     Route: 065
     Dates: start: 20200715
  22. ASPIRIN [Concomitant]
     Active Substance: ASPIRIN
     Indication: Thrombosis prophylaxis
     Dosage: 100 MILLIGRAM, DAILY
     Route: 048
  23. AMLODIPINE BESYLATE [Concomitant]
     Active Substance: AMLODIPINE BESYLATE
     Indication: Hypertension
     Dosage: 10 MILLIGRAM
     Route: 048
  24. SYMBICORT [Concomitant]
     Active Substance: BUDESONIDE\FORMOTEROL FUMARATE DIHYDRATE
     Indication: Chronic obstructive pulmonary disease
     Dosage: 2 UNK, BID
     Dates: end: 20221023
  25. DEXAMETHASONE [Concomitant]
     Active Substance: DEXAMETHASONE
     Indication: Prophylaxis
     Dosage: 4 MILLIGRAM, ONCE (AS NECESSARY)
     Route: 048
     Dates: start: 20200616, end: 20231106
  26. DEXAMETHASONE [Concomitant]
     Active Substance: DEXAMETHASONE
     Indication: Prophylactic chemotherapy
  27. GRANISETRON [Concomitant]
     Active Substance: GRANISETRON
     Indication: Nausea
     Dosage: 2 MILLIGRAM, AS NEEDED
     Route: 048
     Dates: start: 20200616, end: 20221023
  28. Paspertin [Concomitant]
     Indication: Nausea
     Dosage: 4-10 MILLIGRAM, AS NECESSARY
     Route: 048
     Dates: start: 20200616, end: 20231106
  29. LOPERAMIDE HYDROCHLORIDE [Concomitant]
     Active Substance: LOPERAMIDE HYDROCHLORIDE
     Indication: Diarrhoea
     Dosage: 2 MILLIGRAM, AS NECESSARY
     Route: 048
     Dates: start: 20200616, end: 20200909
  30. MINOSTAD [Concomitant]
     Indication: Prophylaxis
     Dosage: 50 MILLIGRAM, BID
     Route: 048
     Dates: start: 20200617, end: 20221023

REACTIONS (4)
  - Polyneuropathy [Recovered/Resolved]
  - Rash [Recovered/Resolved]
  - Rash [Recovered/Resolved]
  - Rash [Recovered/Resolved]

NARRATIVE: CASE EVENT DATE: 20200701
